FAERS Safety Report 7320974-9 (Version None)
Quarter: 2011Q1

REPORT INFORMATION
  Report Type: 
  Country: None (occurrence: None)
  Receive Date: 20110126
  Receipt Date: 20101118
  Transmission Date: 20110831
  Serious: Yes (Hospitalization)
  Sender: FDA-Public Use
  Company Number: A-NJ2010-41872

PATIENT
  Sex: Female

DRUGS (3)
  1. SILDENAFIL CITRATE [Concomitant]
  2. AMBRISENTAN (AMBRISENTAN) [Concomitant]
  3. EPOPROSTENOL SODIUM [Suspect]
     Indication: PULMONARY ARTERIAL HYPERTENSION
     Dosage: 6 NG/KG, PER MIN, IV DRIP
     Route: 041
     Dates: start: 20100628

REACTIONS (2)
  - ABDOMINAL PAIN [None]
  - DIARRHOEA [None]
